FAERS Safety Report 5429900-0 (Version None)
Quarter: 2007Q3

REPORT INFORMATION
  Report Type: 
  Country: None (occurrence: None)
  Receive Date: 20070829
  Receipt Date: 20070817
  Transmission Date: 20080115
  Serious: Yes (Other)
  Sender: FDA-Public Use
  Company Number: US-PFIZER INC-2007069523

PATIENT
  Sex: Female
  Weight: 66.7 kg

DRUGS (10)
  1. LYRICA [Suspect]
     Indication: NEUROPATHY PERIPHERAL
  2. LEVOXYL [Concomitant]
  3. POTASSIUM CHLORIDE [Concomitant]
  4. DILTIAZEM [Concomitant]
  5. LOVASTATIN [Concomitant]
  6. PROTONIX [Concomitant]
  7. HYDROCHLOROTHIAZIDE [Concomitant]
  8. REGLAN [Concomitant]
  9. HYDROMORPHONE HCL [Concomitant]
  10. REFLUDAN [Concomitant]

REACTIONS (2)
  - HERPES ZOSTER [None]
  - WEIGHT INCREASED [None]
